FAERS Safety Report 24189268 (Version 2)
Quarter: 2024Q3

REPORT INFORMATION
  Report Type: Report from Study
  Country: CA (occurrence: CA)
  Receive Date: 20240808
  Receipt Date: 20240912
  Transmission Date: 20241016
  Serious: Yes (Other)
  Sender: Haleon PLC
  Company Number: CA-002147023-NVSC2024CA147126

PATIENT
  Age: 51 Year
  Sex: Female

DRUGS (1)
  1. LAMISIL [Suspect]
     Active Substance: TERBINAFINE HYDROCHLORIDE
     Indication: Product used for unknown indication
     Route: 065

REACTIONS (10)
  - Haemorrhage [Unknown]
  - Alanine aminotransferase increased [Unknown]
  - Pain [Unknown]
  - Skin fissures [Unknown]
  - Malaise [Unknown]
  - Anxiety [Unknown]
  - Tearfulness [Unknown]
  - Psoriasis [Unknown]
  - Skin disorder [Unknown]
  - Pruritus [Unknown]

NARRATIVE: CASE EVENT DATE: 20240705
